FAERS Safety Report 15166634 (Version 8)
Quarter: 2022Q2

REPORT INFORMATION
  Report Type: Spontaneous
  Country: FR (occurrence: FR)
  Receive Date: 20180719
  Receipt Date: 20220408
  Transmission Date: 20220721
  Serious: Yes (Other)
  Sender: FDA-Public Use
  Company Number: None

PATIENT
  Age: 1 Day
  Sex: Male
  Weight: 1.89 kg

DRUGS (31)
  1. NICARDIPINE HYDROCHLORIDE [Suspect]
     Active Substance: NICARDIPINE HYDROCHLORIDE
     Indication: Foetal exposure during pregnancy
     Dosage: 50 MG, QD
     Route: 064
     Dates: start: 20170313, end: 20170405
  2. NICARDIPINE HYDROCHLORIDE [Suspect]
     Active Substance: NICARDIPINE HYDROCHLORIDE
     Dosage: 1 DOSAGE FORM
     Route: 064
     Dates: start: 20170313, end: 20180405
  3. NICARDIPINE [Suspect]
     Active Substance: NICARDIPINE
     Indication: Foetal exposure during pregnancy
     Dosage: MATERNAL DOSE: 50 MG, FORME LP X2/J
     Route: 064
     Dates: start: 20170405
  4. ARIPIPRAZOLE [Suspect]
     Active Substance: ARIPIPRAZOLE
     Indication: Foetal exposure during pregnancy
     Dosage: 10 MG, QD
     Route: 064
     Dates: start: 20160930, end: 20170224
  5. RAMIPRIL [Suspect]
     Active Substance: RAMIPRIL
     Indication: Foetal exposure during pregnancy
     Dosage: 2.5 MG, QD
     Route: 064
     Dates: start: 20160930, end: 20170224
  6. METFORMIN HYDROCHLORIDE [Suspect]
     Active Substance: METFORMIN HYDROCHLORIDE
     Indication: Foetal exposure during pregnancy
     Dosage: 1700 MG, QD
     Route: 064
     Dates: start: 20160930
  7. METFORMIN HYDROCHLORIDE [Suspect]
     Active Substance: METFORMIN HYDROCHLORIDE
     Dosage: 850 MG, QD
     Route: 064
     Dates: end: 20170224
  8. TRAMADOL HYDROCHLORIDE [Suspect]
     Active Substance: TRAMADOL HYDROCHLORIDE
     Indication: Foetal exposure during pregnancy
     Dosage: MATERNAL DOSE: 50 MG, QD
     Route: 064
     Dates: start: 20160930, end: 20170306
  9. GLICLAZIDE [Suspect]
     Active Substance: GLICLAZIDE
     Indication: Foetal exposure during pregnancy
     Dosage: 120 MG, QD
     Route: 064
     Dates: start: 20160930, end: 20170224
  10. AMOXICILLIN TRIHYDRATE [Suspect]
     Active Substance: AMOXICILLIN
     Indication: Foetal exposure during pregnancy
     Dosage: 3 G, QD
     Route: 064
     Dates: start: 20170804, end: 20170811
  11. AMOXICILLIN TRIHYDRATE [Suspect]
     Active Substance: AMOXICILLIN
     Dosage: 1 G, QD
     Route: 065
     Dates: start: 201708, end: 20180811
  12. GABAPENTIN [Suspect]
     Active Substance: GABAPENTIN
     Indication: Foetal exposure during pregnancy
     Dosage: MATERNAL DOSE: 1200 MG (400 MG AND 800 MG), QD
     Route: 064
     Dates: start: 20160930
  13. FUROSEMIDE [Suspect]
     Active Substance: FUROSEMIDE
     Indication: Foetal exposure during pregnancy
     Dosage: 40 MG
     Route: 064
  14. NICOTINE [Suspect]
     Active Substance: NICOTINE
     Indication: Foetal exposure during pregnancy
     Dosage: 7 MG, QD
     Route: 064
     Dates: start: 20170224, end: 20170516
  15. LASIX [Suspect]
     Active Substance: FUROSEMIDE
     Indication: Foetal exposure during pregnancy
     Dosage: MATERNAL DOSE: 40 MG, UNK
     Route: 064
  16. LEVEMIR [Suspect]
     Active Substance: INSULIN DETEMIR
     Indication: Foetal exposure during pregnancy
     Dosage: 10 IU, QD
     Route: 064
     Dates: start: 20160930, end: 20170224
  17. LABETALOL HYDROCHLORIDE [Suspect]
     Active Substance: LABETALOL HYDROCHLORIDE
     Indication: Foetal exposure during pregnancy
     Dosage: MATERNAL DOSE: 80 MG, QD
     Route: 064
     Dates: start: 20170516
  18. LANTUS [Suspect]
     Active Substance: INSULIN GLARGINE
     Indication: Foetal exposure during pregnancy
     Dosage: 20 IU, QD
     Route: 064
     Dates: start: 20170224
  19. FERROUS SULFATE [Suspect]
     Active Substance: FERROUS SULFATE
     Indication: Foetal exposure during pregnancy
     Dosage: MATERNAL DOSE: 1 DF, QD
     Route: 064
     Dates: start: 20170313
  20. AMITRIPTYLINE HYDROCHLORIDE [Suspect]
     Active Substance: AMITRIPTYLINE HYDROCHLORIDE
     Indication: Foetal exposure during pregnancy
     Dosage: MATERNAL DOSE: 2 DF, QD
     Route: 064
     Dates: start: 20160930
  21. HUMALOG [Suspect]
     Active Substance: INSULIN LISPRO
     Indication: Foetal exposure during pregnancy
     Dosage: MATERNAL DOSE: 7 ?G/M2, QD
     Route: 064
     Dates: start: 20170224
  22. HUMALOG [Suspect]
     Active Substance: INSULIN LISPRO
     Dosage: UNK (21 ?G/M2, QD)
     Route: 064
     Dates: start: 20170224, end: 20170224
  23. FOLIC ACID [Suspect]
     Active Substance: FOLIC ACID
     Indication: Foetal exposure during pregnancy
     Dosage: MATERNAL DOSE: 5 MG, QD
     Route: 064
     Dates: start: 20170224, end: 20170313
  24. LEUCOVORIN [Suspect]
     Active Substance: LEUCOVORIN
     Indication: Foetal exposure during pregnancy
     Dosage: 5 MG, QD
     Route: 064
     Dates: start: 20170224, end: 20170313
  25. METHYLDOPA [Suspect]
     Active Substance: METHYLDOPA
     Indication: Foetal exposure during pregnancy
     Dosage: 1500 MG, QD
     Route: 064
     Dates: start: 20170720
  26. POTASSIUM CHLORIDE [Suspect]
     Active Substance: POTASSIUM CHLORIDE
     Indication: Foetal exposure during pregnancy
     Dosage: 120 MG, QD
     Route: 064
     Dates: start: 20170804
  27. POTASSIUM CHLORIDE [Suspect]
     Active Substance: POTASSIUM CHLORIDE
     Dosage: 3600 MG, QD
     Route: 064
     Dates: start: 20170804
  28. POLYETHYLENE GLYCOL 400 [Suspect]
     Active Substance: POLYETHYLENE GLYCOL 400
     Indication: Foetal exposure during pregnancy
     Dosage: 1 DOSAGE FORM, QD
     Route: 064
     Dates: start: 20160930, end: 20170405
  29. CHLORPROMAZINE [Suspect]
     Active Substance: CHLORPROMAZINE
     Indication: Foetal exposure during pregnancy
     Dosage: MATERNAL DOSE: 25 MG, QD
     Route: 064
     Dates: start: 20170720
  30. PROPRANOLOL HYDROCHLORIDE [Suspect]
     Active Substance: PROPRANOLOL HYDROCHLORIDE
     Indication: Product used for unknown indication
     Dosage: 80 MG, QD
     Route: 064
     Dates: start: 20170516
  31. INSULIN LISPRO [Concomitant]
     Active Substance: INSULIN LISPRO
     Indication: Foetal exposure during pregnancy
     Dosage: UNK
     Route: 064
     Dates: start: 20161230, end: 20170224

REACTIONS (5)
  - Premature baby [Not Recovered/Not Resolved]
  - Foetal disorder [Unknown]
  - Neutropenia neonatal [Not Recovered/Not Resolved]
  - Low birth weight baby [Unknown]
  - Foetal exposure during pregnancy [Unknown]

NARRATIVE: CASE EVENT DATE: 20170914
